FAERS Safety Report 20838376 (Version 5)
Quarter: 2022Q3

REPORT INFORMATION
  Report Type: Spontaneous
  Country: US (occurrence: US)
  Receive Date: 20220517
  Receipt Date: 20220808
  Transmission Date: 20221027
  Serious: Yes (Other)
  Sender: FDA-Public Use
  Company Number: US-BRISTOL-MYERS SQUIBB COMPANY-2022-017729

PATIENT
  Age: 62 Year
  Sex: Male

DRUGS (23)
  1. REVLIMID [Suspect]
     Active Substance: LENALIDOMIDE
     Indication: Plasma cell myeloma
     Route: 048
     Dates: start: 20171113, end: 20220128
  2. REVLIMID [Suspect]
     Active Substance: LENALIDOMIDE
     Route: 048
     Dates: start: 20180112
  3. REVLIMID [Suspect]
     Active Substance: LENALIDOMIDE
     Dosage: 21/28 CYCLE
     Route: 048
     Dates: start: 20200228
  4. REVLIMID [Suspect]
     Active Substance: LENALIDOMIDE
     Dosage: 21/28 DAYS
     Route: 048
     Dates: start: 202011
  5. RITUXIMAB [Suspect]
     Active Substance: RITUXIMAB
     Indication: Mantle cell lymphoma
     Dosage: (375 MG/M2)
     Route: 042
     Dates: start: 20171113, end: 20220128
  6. ZOLOFT [Concomitant]
     Active Substance: SERTRALINE HYDROCHLORIDE
     Indication: Product used for unknown indication
     Dosage: 2 TABLETS DAILY
     Route: 048
  7. FAMOTIDINE MERCK [Concomitant]
     Indication: Product used for unknown indication
     Route: 048
  8. ASPIRIN AND DIPYRIDAMOLE [Concomitant]
     Active Substance: ASPIRIN\DIPYRIDAMOLE
     Indication: Product used for unknown indication
     Dosage: 25-200 MG CAPSULE, ER MULTIPHASE 12 HR TAKE 1 CAPSULE BY MOUTH EVERY MORNING AND EVERY EVENING
     Route: 048
  9. NORVASC [Concomitant]
     Active Substance: AMLODIPINE BESYLATE
     Indication: Product used for unknown indication
     Route: 048
  10. IMBRUVICA [Concomitant]
     Active Substance: IBRUTINIB
     Indication: Product used for unknown indication
     Route: 065
  11. IMBRUVICA [Concomitant]
     Active Substance: IBRUTINIB
     Dosage: TAKE AT SAME TIME(S) EACH DAY; SWALLOW WHOLE WITH WATER; DO NOT CRUSH, CHEW, BREAK, DISSOLVE, CUT, O
     Route: 048
  12. SERTRALINE HYDROCHLORIDE [Concomitant]
     Active Substance: SERTRALINE HYDROCHLORIDE
     Indication: Product used for unknown indication
     Dosage: 2 TABLETS ONCE DAILY
     Route: 048
  13. IBRUTINIB [Concomitant]
     Active Substance: IBRUTINIB
     Indication: Product used for unknown indication
     Dosage: 1 TABLET, TAKE AT SAME TIME EACH DAY, SWALLOW WHOLE WITH WATER, DO NOT CRUSH, CHEW, BREAK, DISSOLVE,
     Route: 048
  14. CHANTIX [Concomitant]
     Active Substance: VARENICLINE TARTRATE
     Indication: Product used for unknown indication
     Dosage: 0.5MG (11) TO 1MG (42) DOSE PACK, TAKE AS DIRECTED
     Route: 048
  15. SODIUM CHLORIDE [Concomitant]
     Active Substance: SODIUM CHLORIDE
     Indication: Product used for unknown indication
     Route: 042
     Dates: start: 20171113, end: 20171113
  16. ACETAMINOPHEN [Concomitant]
     Active Substance: ACETAMINOPHEN
     Indication: Product used for unknown indication
     Route: 048
     Dates: start: 20171113, end: 20220128
  17. DIPHENHYDRAMINE [Concomitant]
     Active Substance: DIPHENHYDRAMINE
     Indication: Product used for unknown indication
     Route: 048
     Dates: start: 20180412, end: 20180412
  18. DIPHENHYDRAMINE [Concomitant]
     Active Substance: DIPHENHYDRAMINE
     Route: 048
     Dates: start: 20180814, end: 20180814
  19. DIPHENHYDRAMINE [Concomitant]
     Active Substance: DIPHENHYDRAMINE
     Route: 048
     Dates: start: 20190130, end: 20190130
  20. DIPHENHYDRAMINE [Concomitant]
     Active Substance: DIPHENHYDRAMINE
     Route: 048
     Dates: start: 20180214, end: 20180214
  21. DIPHENHYDRAMINE [Concomitant]
     Active Substance: DIPHENHYDRAMINE
     Route: 042
     Dates: start: 20171113, end: 20200108
  22. ZARXIO [Concomitant]
     Active Substance: FILGRASTIM-SNDZ
     Indication: Mantle cell lymphoma
     Dosage: DAY 1TO DAY5, Q7D
     Route: 058
     Dates: start: 20210205, end: 20210207
  23. ZARXIO [Concomitant]
     Active Substance: FILGRASTIM-SNDZ
     Dosage: DAY 1TO DAY5, Q7D
     Route: 065
     Dates: start: 20210208, end: 20210212

REACTIONS (9)
  - Cerebrovascular accident [Unknown]
  - Seizure [Unknown]
  - Plasma cell myeloma refractory [Unknown]
  - Nasopharyngitis [Unknown]
  - White blood cell count decreased [Unknown]
  - Product dose omission issue [Unknown]
  - Depression [Unknown]
  - Panic attack [Unknown]
  - Infusion related reaction [Unknown]

NARRATIVE: CASE EVENT DATE: 20180206
